FAERS Safety Report 9511056 (Version 1)
Quarter: 2013Q1

REPORT INFORMATION
  Report Type: Spontaneous
  Country: US (occurrence: None)
  Receive Date: 20130305
  Receipt Date: 20130305
  Transmission Date: 20140127
  Serious: Yes (Other)
  Sender: FDA-Public Use
  Company Number: 163-21880-12021256

PATIENT
  Age: 60 Year
  Sex: Female
  Weight: 117.03 kg

DRUGS (15)
  1. REVLIMID [Suspect]
     Indication: PLASMA CELL MYELOMA
     Dosage: 25 MG, QD X 21D, THEN OFF X 7D, PO
     Route: 048
     Dates: start: 20111213, end: 20120403
  2. ASA (ACETHYLSALICYCLIC ACID) (UNKNOWN) [Concomitant]
  3. HUMULIN 70/30 (HUMULIN 70/30) (INJECTION) [Concomitant]
  4. METOPROLOL (METOPROLOL) (UNKNOWN) [Concomitant]
  5. PLAVIX (CLOPIDOGREL SULFATE) (UNKNOWN) [Concomitant]
  6. LASIX (FUROSEMIDE) (UNKNOWN) [Concomitant]
  7. NEXIUM (ESOMEPRAZOLE) (UNKNOWN) [Concomitant]
  8. GLIPIZIDE (GLIPIZIDE) (UNKNOWN) [Concomitant]
  9. METFORMIN (METORMIN) (UNKNOWN) [Concomitant]
  10. LOSARTAN (LOSARTAN) (UNKNOWN) [Concomitant]
  11. PRAVACHOL (PRAVASTATIN SODIUM) (UNKNOWN) [Concomitant]
  12. POTASSIUM (POTASSIUM) (UNKNOWN) [Concomitant]
  13. BENADRYL (CLONALIN) (UNKNOWN) [Concomitant]
  14. DESITIN (STERASXIN) (UNKNOWN) [Concomitant]
  15. COUMADIN (WARFARIN SODIUM) (UNKNOWN) [Concomitant]

REACTIONS (1)
  - Deep vein thrombosis [None]
